FAERS Safety Report 9046936 (Version 1)
Quarter: 2013Q1

REPORT INFORMATION
  Report Type: Spontaneous
  Country: US (occurrence: None)
  Receive Date: 20130129
  Receipt Date: 20130129
  Transmission Date: 20140127
  Serious: Yes (Death)
  Sender: FDA-Public Use
  Company Number: None

PATIENT
  Age: 34 Year
  Sex: Male
  Weight: 67.5 kg

DRUGS (1)
  1. DAPSONE 25 MG [Suspect]
     Indication: PNEUMOCYSTIS JIROVECII INFECTION
     Route: 048
     Dates: start: 20121109, end: 20121113

REACTIONS (13)
  - Glucose-6-phosphate dehydrogenase deficiency [None]
  - Haemolytic anaemia [None]
  - Acidosis [None]
  - Dyspnoea [None]
  - Pain [None]
  - Unresponsive to stimuli [None]
  - Pulseless electrical activity [None]
  - Tachycardia [None]
  - Cardio-respiratory arrest [None]
  - Histoplasmosis disseminated [None]
  - Sepsis [None]
  - Mycobacterium avium complex infection [None]
  - Lung infection [None]
